FAERS Safety Report 16779646 (Version 2)
Quarter: 2020Q1

REPORT INFORMATION
  Report Type: Report from Study
  Country: GB (occurrence: GB)
  Receive Date: 20190906
  Receipt Date: 20200111
  Transmission Date: 20200409
  Serious: Yes (Other)
  Sender: FDA-Public Use
  Company Number: GB-TEVA-2019-GB-1102628

PATIENT
  Age: 49 Year
  Sex: Female

DRUGS (2)
  1. COPAXONE [Suspect]
     Active Substance: GLATIRAMER ACETATE
     Indication: PRODUCT USED FOR UNKNOWN INDICATION
     Route: 065
  2. GILENYA [Suspect]
     Active Substance: FINGOLIMOD HYDROCHLORIDE
     Indication: MULTIPLE SCLEROSIS
     Dosage: 0.5 MG, QD 1 DAYS
     Route: 048
     Dates: start: 20140722, end: 20140731

REACTIONS (16)
  - Mobility decreased [Recovering/Resolving]
  - Depressed mood [Recovered/Resolved]
  - Facial paralysis [Recovering/Resolving]
  - Skin reaction [Unknown]
  - Nausea [Recovered/Resolved]
  - Vomiting [Recovered/Resolved]
  - Coordination abnormal [Unknown]
  - Multiple sclerosis relapse [Recovering/Resolving]
  - Malaise [Recovered/Resolved]
  - Paralysis [Recovering/Resolving]
  - Paresis [Unknown]
  - Suicidal ideation [Recovered/Resolved]
  - Nausea [Recovered/Resolved]
  - Flushing [Recovered/Resolved]
  - Vision blurred [Unknown]
  - Pain [Recovering/Resolving]

NARRATIVE: CASE EVENT DATE: 20140726
